FAERS Safety Report 7381620-1 (Version None)
Quarter: 2011Q1

REPORT INFORMATION
  Report Type: 
  Country: None (occurrence: None)
  Receive Date: 20110329
  Receipt Date: 20101006
  Transmission Date: 20110831
  Serious: Yes (Other)
  Sender: FDA-Public Use
  Company Number: US-BAYER-201021208NA

PATIENT
  Sex: Female
  Weight: 79 kg

DRUGS (6)
  1. DIAZIDE [Concomitant]
  2. YASMIN [Suspect]
     Indication: ORAL CONTRACEPTION
     Dosage: UNK UNK, QD
     Route: 048
     Dates: start: 20060801, end: 20080801
  3. OCELLA [Suspect]
     Indication: ORAL CONTRACEPTION
     Dosage: UNK UNK, QD
     Route: 048
     Dates: start: 20080801, end: 20091001
  4. YASMIN [Suspect]
     Indication: OVARIAN CYST
  5. VERAPAMIL [Concomitant]
  6. OCELLA [Suspect]
     Indication: OVARIAN CYST

REACTIONS (4)
  - DEEP VEIN THROMBOSIS [None]
  - THROMBOSIS [None]
  - INJURY [None]
  - MENTAL DISORDER [None]
